FAERS Safety Report 12539985 (Version 1)
Quarter: 2016Q3

REPORT INFORMATION
  Report Type: Spontaneous
  Country: US (occurrence: US)
  Receive Date: 20160708
  Receipt Date: 20160708
  Transmission Date: 20161109
  Serious: No
  Sender: FDA-Public Use
  Company Number: US-GLAXOSMITHKLINE-US2016GSK091469

PATIENT
  Sex: Female

DRUGS (2)
  1. VENTOLIN HFA [Suspect]
     Active Substance: ALBUTEROL SULFATE
     Indication: DYSPNOEA
     Dosage: UNK
     Dates: start: 2013
  2. FLOVENT [Suspect]
     Active Substance: FLUTICASONE PROPIONATE
     Indication: DYSPNOEA
     Dosage: UNK
     Dates: start: 2013

REACTIONS (2)
  - Expired product administered [Unknown]
  - Incorrect dose administered [Unknown]
